FAERS Safety Report 18429543 (Version 1)
Quarter: 2020Q4

REPORT INFORMATION
  Report Type: Spontaneous
  Country: KR (occurrence: KR)
  Receive Date: 20201026
  Receipt Date: 20201026
  Transmission Date: 20210114
  Serious: Yes (Hospitalization, Other)
  Sender: FDA-Public Use
  Company Number: KR-ALLERGAN-2040496US

PATIENT
  Sex: Male

DRUGS (2)
  1. FINASTAR [Suspect]
     Active Substance: FINASTERIDE
     Indication: PROSTATE CANCER
     Dosage: 5 MG, QD
     Route: 048
     Dates: start: 20190312
  2. SILODOSIN - BP [Suspect]
     Active Substance: SILODOSIN
     Indication: PROSTATE CANCER
     Dosage: 8 MG, QD
     Route: 048
     Dates: start: 20190312

REACTIONS (1)
  - Prostate cancer [Unknown]
